FAERS Safety Report 6113858-5 (Version None)
Quarter: 2009Q1

REPORT INFORMATION
  Report Type: 
  Country: None (occurrence: None)
  Receive Date: 20090312
  Receipt Date: 20090306
  Transmission Date: 20090719
  Serious: Yes (Other)
  Sender: FDA-Public Use
  Company Number: US-ABBOTT-08P-163-0473892-00

PATIENT
  Sex: Female
  Weight: 71.278 kg

DRUGS (10)
  1. HUMIRA [Suspect]
     Indication: PSORIATIC ARTHROPATHY
     Route: 050
     Dates: start: 20080701, end: 20080708
  2. HUMIRA [Suspect]
     Route: 050
     Dates: start: 20080902
  3. ELAVIL [Concomitant]
     Indication: ANXIETY
     Route: 048
  4. OXYCODONE HCL [Concomitant]
     Indication: PAIN
     Route: 048
  5. SOMA [Concomitant]
     Indication: MUSCLE RELAXANT THERAPY
     Route: 048
  6. MORPHINE [Concomitant]
     Indication: PAIN
     Route: 048
  7. ZANTAC [Concomitant]
     Indication: GASTRIC DISORDER
     Route: 048
  8. NEURONTIN [Concomitant]
     Indication: NEUROPATHY PERIPHERAL
     Dosage: 3 PILLS TID
     Route: 048
  9. HYDROXINE [Concomitant]
     Indication: DRUG USE FOR UNKNOWN INDICATION
     Route: 048
  10. MORPHINE [Concomitant]
     Route: 048

REACTIONS (3)
  - BLOOD GLUCOSE INCREASED [None]
  - DIABETES MELLITUS [None]
  - ORAL INFECTION [None]
